FAERS Safety Report 9200409 (Version 3)
Quarter: 2013Q2

REPORT INFORMATION
  Report Type: Spontaneous
  Country: JP (occurrence: JP)
  Receive Date: 20130329
  Receipt Date: 20130429
  Transmission Date: 20140414
  Serious: Yes (Hospitalization, Other)
  Sender: FDA-Public Use
  Company Number: JP-OTSUKA-JP-2013-10715

PATIENT
  Age: 79 Year
  Sex: Female

DRUGS (18)
  1. SAMSCA [Suspect]
     Indication: CARDIAC FAILURE
     Dosage: 7.5 MG MILLIGRAM(S), QD
     Route: 048
     Dates: start: 20130129, end: 20130213
  2. SAMSCA [Suspect]
     Indication: HYPONATRAEMIA
     Dosage: 15 MG MILLIGRAM(S), QD
     Route: 048
     Dates: start: 20130214
  3. GOREI-SAN [Suspect]
     Dosage: 1 DF DOSAGE FORM, TID
     Route: 048
     Dates: end: 20130412
  4. PLAVIX [Suspect]
     Indication: CORONARY ARTERIAL STENT INSERTION
     Dosage: 32.5 MG MILLIGRAM(S), QD
     Route: 048
  5. NORVASC [Concomitant]
     Indication: HYPERTENSION
     Dosage: 5 MG MILLIGRAM(S), QD
     Route: 048
     Dates: end: 20130412
  6. LUPRAC [Concomitant]
     Indication: CARDIAC FAILURE CHRONIC
     Dosage: 8 MG MILLIGRAM(S), QD
     Route: 048
     Dates: end: 20130412
  7. FUROSEMIDE [Concomitant]
     Dosage: 20 MG MILLIGRAM(S), QD
     Route: 048
     Dates: end: 20130412
  8. FUROSEMIDE [Concomitant]
     Dosage: 60 MG MILLIGRAM(S), QD
     Route: 048
     Dates: end: 20130412
  9. LIPITOR [Concomitant]
     Indication: HYPERLIPIDAEMIA
     Dosage: 10 MG MILLIGRAM(S), QD
     Route: 048
     Dates: end: 20130412
  10. BAYASPIRIN [Concomitant]
     Dosage: 100 MG MILLIGRAM(S), QD
     Route: 048
     Dates: end: 20130412
  11. ITOROL [Concomitant]
     Dosage: 20 MG MILLIGRAM(S), BID
     Route: 048
     Dates: end: 20130412
  12. SIGMART [Concomitant]
     Dosage: 5 MG MILLIGRAM(S), BID
     Route: 048
     Dates: end: 20130412
  13. VOGLIBOSE [Concomitant]
     Dosage: 0.2 MG MILLIGRAM(S), TID
     Route: 048
     Dates: end: 20130412
  14. TAKEPRON [Concomitant]
     Dosage: 15 MG MILLIGRAM(S), QD
     Route: 048
  15. HUSCODE [Concomitant]
     Dosage: UNK UNK, QD
     Route: 048
  16. ARTIST [Concomitant]
     Dosage: 1.25 MG MILLIGRAM(S), BID
     Route: 048
     Dates: end: 20130412
  17. ALLOPURINOL [Concomitant]
     Dosage: UNK UNK, QD
     Route: 048
  18. ALDACTONE A [Concomitant]
     Indication: CARDIAC FAILURE CHRONIC
     Dosage: 50 MG MILLIGRAM(S), QD
     Route: 048
     Dates: end: 20130412

REACTIONS (5)
  - Interstitial lung disease [Recovering/Resolving]
  - Anaemia [Recovering/Resolving]
  - Blood urea increased [Unknown]
  - Cholelithiasis [Unknown]
  - Splenomegaly [Unknown]
